FAERS Safety Report 12089135 (Version 1)
Quarter: 2016Q1

REPORT INFORMATION
  Report Type: Spontaneous
  Country: US (occurrence: None)
  Receive Date: 20160217
  Receipt Date: 20160217
  Transmission Date: 20160526
  Serious: Yes (Disabling)
  Sender: FDA-Public Use
  Company Number: None

PATIENT
  Age: 53 Year
  Sex: Female
  Weight: 78.93 kg

DRUGS (10)
  1. METOPROLOL. [Concomitant]
     Active Substance: METOPROLOL
  2. ISOSORBIDE. [Concomitant]
     Active Substance: ISOSORBIDE
  3. LEVOTHYROXINE. [Concomitant]
     Active Substance: LEVOTHYROXINE
  4. NOVOLOG [Concomitant]
     Active Substance: INSULIN ASPART
  5. CRESTOR [Concomitant]
     Active Substance: ROSUVASTATIN CALCIUM
  6. VITAMINS [Concomitant]
     Active Substance: VITAMINS
  7. FARXIGA [Suspect]
     Active Substance: DAPAGLIFLOZIN PROPANEDIOL
     Indication: TYPE 1 DIABETES MELLITUS
     Route: 048
     Dates: start: 20160130, end: 20160203
  8. ASPRIN [Concomitant]
     Active Substance: ASPIRIN
  9. LOSARTAN. [Concomitant]
     Active Substance: LOSARTAN
  10. FISH OIL [Concomitant]
     Active Substance: FISH OIL

REACTIONS (1)
  - Protein urine present [None]

NARRATIVE: CASE EVENT DATE: 20160203
